FAERS Safety Report 19779406 (Version 1)
Quarter: 2021Q3

REPORT INFORMATION
  Report Type: Spontaneous
  Country: US (occurrence: US)
  Receive Date: 20210830
  Receipt Date: 20210830
  Transmission Date: 20211014
  Serious: Yes (Hospitalization)
  Sender: FDA-Public Use
  Company Number: None

PATIENT
  Age: 58 Year
  Sex: Female

DRUGS (3)
  1. TACROLIMUS ++(DR REDDY) 0.5MG NONE [Suspect]
     Active Substance: TACROLIMUS
     Indication: COMPLICATIONS OF TRANSPLANTED KIDNEY
     Route: 048
     Dates: start: 201201
  2. EVEROLIMUS 0.5MG ROXANE [Suspect]
     Active Substance: EVEROLIMUS
     Indication: LIVER TRANSPLANT
     Route: 048
     Dates: start: 202004
  3. TACROLIMUS ++(DR REDDY) 0.5MG NONE [Suspect]
     Active Substance: TACROLIMUS
     Indication: LIVER TRANSPLANT
     Route: 048
     Dates: start: 201201

REACTIONS (1)
  - Pneumonia [None]

NARRATIVE: CASE EVENT DATE: 202104
